FAERS Safety Report 19749718 (Version 1)
Quarter: 2021Q3

REPORT INFORMATION
  Report Type: Spontaneous
  Country: US (occurrence: US)
  Receive Date: 20210824
  Receipt Date: 20210824
  Transmission Date: 20211014
  Serious: No
  Sender: FDA-Public Use
  Company Number: None

PATIENT
  Sex: Female

DRUGS (1)
  1. STELARA [Suspect]
     Active Substance: USTEKINUMAB
     Indication: PSORIASIS
     Dosage: OTHER FREQUENCY:EVERY 12 WEEKS;?
     Route: 058
     Dates: start: 201901

REACTIONS (4)
  - Incorrect dose administered by device [None]
  - Injection site mass [None]
  - Injection site extravasation [None]
  - Device malfunction [None]
